FAERS Safety Report 5000245-6 (Version None)
Quarter: 2006Q2

REPORT INFORMATION
  Report Type: 
  Country: None (occurrence: None)
  Receive Date: 20060511
  Receipt Date: 20051104
  Transmission Date: 20061013
  Serious: Yes (Hospitalization, Disabling)
  Sender: FDA-Public Use
  Company Number: US-MERCK-0511USA00785

PATIENT
  Age: 45 Year
  Sex: Male
  Weight: 98 kg

DRUGS (11)
  1. VIOXX [Suspect]
     Indication: ARTHRITIS
     Route: 048
     Dates: start: 20020417, end: 20040304
  2. VIOXX [Suspect]
     Indication: HEADACHE
     Route: 048
     Dates: start: 20020417, end: 20040304
  3. ADVAIR DISKUS 100/50 [Concomitant]
     Route: 065
  4. LIPITOR [Concomitant]
     Route: 065
  5. TYLENOL W/ CODEINE [Concomitant]
     Route: 065
  6. IBUPROFEN [Concomitant]
     Route: 065
  7. KEFLEX [Concomitant]
     Route: 065
  8. PREDNISONE [Concomitant]
     Route: 065
  9. AUGMENTIN '125' [Concomitant]
     Route: 065
  10. PHENERGAN EXPECTORANT W/ CODEINE [Concomitant]
     Route: 065
  11. PLAVIX [Concomitant]
     Route: 065

REACTIONS (14)
  - BRONCHITIS [None]
  - CEREBROVASCULAR ACCIDENT [None]
  - CLUMSINESS [None]
  - CORONARY ARTERY DISEASE [None]
  - DEPRESSION [None]
  - FATIGUE [None]
  - GENERALISED ANXIETY DISORDER [None]
  - GLUCOSE TOLERANCE IMPAIRED [None]
  - HYPERLIPIDAEMIA [None]
  - NODULE ON EXTREMITY [None]
  - SUBCLAVIAN STEAL SYNDROME [None]
  - TOOTH INFECTION [None]
  - TRANSIENT ISCHAEMIC ATTACK [None]
  - WEIGHT INCREASED [None]
